FAERS Safety Report 5071354-0 (Version None)
Quarter: 2006Q3

REPORT INFORMATION
  Report Type: 
  Country: None (occurrence: None)
  Receive Date: 20060804
  Receipt Date: 20060106
  Transmission Date: 20061208
  Serious: No
  Sender: FDA-Public Use
  Company Number: US-AMGEN-US163995

PATIENT
  Sex: Female

DRUGS (10)
  1. ARANESP [Suspect]
     Indication: DIALYSIS
     Dates: start: 20051201
  2. NORVASC [Concomitant]
  3. HECTORAL [Concomitant]
  4. LEXAPRO [Concomitant]
  5. CHROMAGEN [Concomitant]
  6. MAGNESIUM OXIDE [Concomitant]
  7. PROTONIX [Concomitant]
  8. POTASSIUM [Concomitant]
  9. AMBIEN [Concomitant]
  10. CLONIDINE [Concomitant]

REACTIONS (1)
  - THERAPEUTIC RESPONSE DECREASED [None]
